FAERS Safety Report 6100771-2 (Version None)
Quarter: 2009Q1

REPORT INFORMATION
  Report Type: 
  Country: None (occurrence: None)
  Receive Date: 20090303
  Receipt Date: 20090223
  Transmission Date: 20090719
  Serious: Yes (Other)
  Sender: FDA-Public Use
  Company Number: DE-GILEAD-2009-0020405

PATIENT
  Age: 43 Year
  Sex: Male
  Weight: 81 kg

DRUGS (3)
  1. VIREAD [Suspect]
     Indication: HEPATITIS B
     Route: 048
     Dates: start: 20090129
  2. HEPSERA [Concomitant]
     Indication: HEPATITIS B
     Route: 048
     Dates: start: 20070813, end: 20090128
  3. BARACLUDE [Concomitant]
     Indication: HEPATITIS B
     Route: 048
     Dates: start: 20070813, end: 20090128

REACTIONS (2)
  - OEDEMA PERIPHERAL [None]
  - PLANTAR ERYTHEMA [None]
